FAERS Safety Report 9736763 (Version 4)
Quarter: 2013Q4

REPORT INFORMATION
  Report Type: Report from Study
  Country: DE (occurrence: DE)
  Receive Date: 20131206
  Receipt Date: 20131221
  Transmission Date: 20140711
  Serious: Yes (Death)
  Sender: FDA-Public Use
  Company Number: PHHY2013DE038579

PATIENT
  Sex: Male

DRUGS (3)
  1. ICL670A [Suspect]
     Indication: MYELODYSPLASTIC SYNDROME
     Dosage: 15.625 MG/KG, QD
     Route: 048
     Dates: start: 20110308, end: 20120124
  2. ALLOPURINOL [Concomitant]
     Dosage: UNK UKN, UNK
  3. ERYTHROCYTES [Concomitant]
     Dosage: UNK UKN, UNK

REACTIONS (5)
  - Myelodysplastic syndrome [Fatal]
  - Aortic aneurysm [Fatal]
  - Infarction [Fatal]
  - Sepsis [Fatal]
  - Creatinine renal clearance decreased [Fatal]
